FAERS Safety Report 8208064-4 (Version None)
Quarter: 2012Q1

REPORT INFORMATION
  Report Type: 
  Country: None (occurrence: None)
  Receive Date: 20120314
  Receipt Date: 20120309
  Transmission Date: 20120608
  Serious: Yes (Hospitalization)
  Sender: FDA-Public Use
  Company Number: US-MEDIMMUNE-MEDI-0014344

PATIENT
  Sex: Male
  Weight: 6.17 kg

DRUGS (4)
  1. SYNAGIS [Suspect]
     Dates: start: 20120106, end: 20120106
  2. PANTOPRAZOLE [Concomitant]
     Route: 042
  3. SYNAGIS [Suspect]
     Dates: start: 20111128, end: 20111128
  4. RANITIDINE [Concomitant]
     Dates: start: 20111201

REACTIONS (2)
  - DEVICE RELATED INFECTION [None]
  - FEEDING TUBE COMPLICATION [None]
